FAERS Safety Report 23262233 (Version 4)
Quarter: 2024Q1

REPORT INFORMATION
  Report Type: Spontaneous
  Country: CA (occurrence: CA)
  Receive Date: 20231205
  Receipt Date: 20240220
  Transmission Date: 20240410
  Serious: Yes (Other)
  Sender: FDA-Public Use
  Company Number: CA-PFIZER INC-202300267818

PATIENT
  Age: 69 Year
  Sex: Male

DRUGS (4)
  1. ABRILADA [Suspect]
     Active Substance: ADALIMUMAB-AFZB
     Indication: Crohn^s disease
     Dosage: 1 DF, WEEK 0: 160 MG SC, WEEK 2: 80MG SC, THEN 40MG EVERY OTHER WEEK STARTING WEEK 4
     Route: 058
     Dates: start: 20230628, end: 202308
  2. ABRILADA [Suspect]
     Active Substance: ADALIMUMAB-AFZB
     Dosage: 1 DF (160 MG AND THEN 80 MG IN 2 WEEKS AND THEN 40 MG WEEKLY)
     Route: 058
     Dates: start: 202308
  3. ABRILADA [Suspect]
     Active Substance: ADALIMUMAB-AFZB
     Dosage: 1 DF (160 MG AND THEN 80 MG IN 2 WEEKS AND THEN 40 MG WEEKLY)
     Route: 058
     Dates: start: 20231018
  4. PREDNISONE [Concomitant]
     Active Substance: PREDNISONE
     Dosage: UNK

REACTIONS (6)
  - Myasthenia gravis [Not Recovered/Not Resolved]
  - Off label use [Unknown]
  - Vision blurred [Recovering/Resolving]
  - Posture abnormal [Unknown]
  - Eye pain [Recovered/Resolved]
  - Muscular weakness [Unknown]

NARRATIVE: CASE EVENT DATE: 20231001
